FAERS Safety Report 5773476-5 (Version None)
Quarter: 2008Q2

REPORT INFORMATION
  Report Type: 
  Country: None (occurrence: None)
  Receive Date: 20080616
  Receipt Date: 20080606
  Transmission Date: 20081010
  Serious: Yes (Other)
  Sender: FDA-Public Use
  Company Number: US-BAYER-200824526NA

PATIENT
  Age: 66 Year
  Sex: Male

DRUGS (1)
  1. AVELOX [Suspect]
     Indication: COUGH
     Dosage: TOTAL DAILY DOSE: 400 MG  UNIT DOSE: 400 MG
     Route: 048
     Dates: start: 20080530, end: 20080530

REACTIONS (5)
  - GENERALISED ERYTHEMA [None]
  - HYPERSENSITIVITY [None]
  - PRURITUS GENERALISED [None]
  - SENSATION OF FOREIGN BODY [None]
  - THROAT TIGHTNESS [None]
